FAERS Safety Report 23868201 (Version 1)
Quarter: 2024Q2

REPORT INFORMATION
  Report Type: Report from Study
  Country: CN (occurrence: CN)
  Receive Date: 20240517
  Receipt Date: 20240517
  Transmission Date: 20240716
  Serious: Yes (Hospitalization, Other)
  Sender: FDA-Public Use
  Company Number: CN-SA-SAC20240515000460

PATIENT
  Age: 2 Year
  Sex: Male

DRUGS (2)
  1. DUPILUMAB [Suspect]
     Active Substance: DUPILUMAB
     Indication: Dermatitis atopic
     Dosage: 200 MG, QM
     Route: 058
     Dates: start: 202307
  2. LACTOFERRIN [Concomitant]
     Active Substance: LACTOFERRIN
     Indication: Immune enhancement therapy
     Dosage: UNK

REACTIONS (7)
  - Pneumonia mycoplasmal [Recovering/Resolving]
  - Pyrexia [Recovered/Resolved]
  - Dermatitis atopic [Not Recovered/Not Resolved]
  - Cough [Recovered/Resolved]
  - Pyrexia [Recovered/Resolved]
  - Condition aggravated [Recovered/Resolved]
  - Rhinorrhoea [Not Recovered/Not Resolved]

NARRATIVE: CASE EVENT DATE: 20230101
